FAERS Safety Report 12651683 (Version 1)
Quarter: 2016Q3

REPORT INFORMATION
  Report Type: Spontaneous
  Country: US (occurrence: US)
  Receive Date: 20160815
  Receipt Date: 20160815
  Transmission Date: 20161109
  Serious: Yes (Other)
  Sender: FDA-Public Use
  Company Number: US-PFIZER INC-2016384387

PATIENT
  Sex: Female

DRUGS (2)
  1. SOY [Suspect]
     Active Substance: SOY EXTRACT
     Dosage: UNK
  2. ADVIL [Suspect]
     Active Substance: IBUPROFEN
     Dosage: UNK

REACTIONS (5)
  - Condition aggravated [Unknown]
  - Choking [Unknown]
  - Reaction to drug excipients [Unknown]
  - Dyspnoea [Unknown]
  - Food allergy [Unknown]
